FAERS Safety Report 9280354 (Version 1)
Quarter: 2013Q2

REPORT INFORMATION
  Report Type: Spontaneous
  Country: US (occurrence: US)
  Receive Date: 20130509
  Receipt Date: 20130509
  Transmission Date: 20140414
  Serious: Yes (Death, Hospitalization)
  Sender: FDA-Public Use
  Company Number: US-ASTELLAS-2013US004757

PATIENT
  Age: 84 Year
  Sex: Female

DRUGS (1)
  1. TARCEVA [Suspect]
     Indication: SMALL INTESTINE CARCINOMA
     Dosage: 150 MG, UID/QD
     Route: 065

REACTIONS (6)
  - Off label use [Unknown]
  - Death [Fatal]
  - Asthenia [Unknown]
  - Pneumonia [Unknown]
  - Diarrhoea [Not Recovered/Not Resolved]
  - Rash [Unknown]
